FAERS Safety Report 7053036-9 (Version None)
Quarter: 2010Q4

REPORT INFORMATION
  Report Type: 
  Country: None (occurrence: None)
  Receive Date: 20101020
  Receipt Date: 20101008
  Transmission Date: 20110411
  Serious: Yes (Hospitalization, Other)
  Sender: FDA-Public Use
  Company Number: US-ELI_LILLY_AND_COMPANY-US201010002219

PATIENT
  Age: 60 Year
  Sex: Female

DRUGS (2)
  1. HUMALOG [Suspect]
     Indication: DIABETES MELLITUS
     Dosage: UNK, AS NEEDED
  2. LEVEMIR [Concomitant]

REACTIONS (9)
  - BLOOD GLUCOSE DECREASED [None]
  - BLOOD GLUCOSE INCREASED [None]
  - IMMUNE SYSTEM DISORDER [None]
  - INCORRECT DOSE ADMINISTERED [None]
  - LIVER TRANSPLANT [None]
  - PARKINSON'S DISEASE [None]
  - RENAL TRANSPLANT [None]
  - RESPIRATORY TRACT INFECTION [None]
  - VISUAL ACUITY REDUCED [None]
